FAERS Safety Report 7056411-1 (Version None)
Quarter: 2010Q4

REPORT INFORMATION
  Report Type: 
  Country: None (occurrence: None)
  Receive Date: 20101018
  Receipt Date: 20101011
  Transmission Date: 20110411
  Serious: Yes (Hospitalization, Other)
  Sender: FDA-Public Use
  Company Number: 2010SP044419

PATIENT
  Age: 29 Year
  Sex: Male
  Weight: 77 kg

DRUGS (2)
  1. REMERON [Suspect]
     Indication: GENERALISED ANXIETY DISORDER
     Dosage: 30 MG;QD;PO ; 45 MG;QD;PO
     Route: 048
     Dates: start: 20100210, end: 20100224
  2. REMERON [Suspect]
     Indication: GENERALISED ANXIETY DISORDER
     Dosage: 30 MG;QD;PO ; 45 MG;QD;PO
     Route: 048
     Dates: start: 20100225, end: 20100308

REACTIONS (1)
  - HEPATITIS ACUTE [None]
